FAERS Safety Report 13056491 (Version 1)
Quarter: 2016Q4

REPORT INFORMATION
  Report Type: Not Available
  Country: US (occurrence: US)
  Receive Date: 20161222
  Receipt Date: 20161222
  Transmission Date: 20170207
  Serious: Yes (Other)
  Sender: FDA-Public Use
  Company Number: US-ANIPHARMA-2016-US-010493

PATIENT
  Age: 62 Year
  Sex: Female

DRUGS (3)
  1. OXYCODONE EXTENDED RELEASE [Suspect]
     Active Substance: OXYCODONE
     Dosage: 240 MG DAILY
     Route: 065
  2. DIAZEPAM. [Suspect]
     Active Substance: DIAZEPAM
     Dosage: 20 MG DAILY
     Route: 065
  3. OXYCODONE (NON-SPECIFIC) [Suspect]
     Active Substance: OXYCODONE
     Dosage: 4 TIMES DAILY
     Route: 065

REACTIONS (3)
  - Sleep apnoea syndrome [Unknown]
  - Sleep disorder [Unknown]
  - Somnolence [Recovered/Resolved]
